FAERS Safety Report 15157840 (Version 1)
Quarter: 2018Q3

REPORT INFORMATION
  Report Type: Spontaneous
  Country: FR (occurrence: FR)
  Receive Date: 20180718
  Receipt Date: 20180718
  Transmission Date: 20181010
  Serious: Yes (Disabling)
  Sender: FDA-Public Use
  Company Number: FR-ASTRAZENECA-2018SE89231

PATIENT
  Age: 48 Year
  Sex: Female

DRUGS (2)
  1. CRESTOR [Suspect]
     Active Substance: ROSUVASTATIN CALCIUM
     Indication: HYPERCHOLESTEROLAEMIA
     Route: 048
     Dates: start: 2014, end: 20171205
  2. LUTERAN [Suspect]
     Active Substance: CHLORMADINONE ACETATE
     Indication: ENDOMETRIOSIS
     Route: 048
     Dates: start: 20170915, end: 20171003

REACTIONS (2)
  - Nerve compression [Recovered/Resolved]
  - Mononeuritis [Recovered/Resolved]

NARRATIVE: CASE EVENT DATE: 20170930
